FAERS Safety Report 7866068-5 (Version None)
Quarter: 2011Q4

REPORT INFORMATION
  Report Type: 
  Country: None (occurrence: None)
  Receive Date: 20111028
  Receipt Date: 20110418
  Transmission Date: 20120403
  Serious: No
  Sender: FDA-Public Use
  Company Number: US-GLAXOSMITHKLINE-A0923362A

PATIENT
  Age: 56 Year
  Sex: Male

DRUGS (2)
  1. ADVAIR DISKUS 100/50 [Suspect]
     Indication: CHRONIC OBSTRUCTIVE PULMONARY DISEASE
     Dosage: 2PUFF TWICE PER DAY
     Route: 055
     Dates: start: 20100818
  2. RESCUE REMEDY [Concomitant]

REACTIONS (7)
  - HEADACHE [None]
  - VOMITING [None]
  - PYREXIA [None]
  - COUGH [None]
  - RESPIRATORY TRACT INFECTION VIRAL [None]
  - DYSPNOEA [None]
  - SPUTUM INCREASED [None]
